FAERS Safety Report 11134684 (Version 1)
Quarter: 2015Q2

REPORT INFORMATION
  Report Type: Report from Study
  Country: US (occurrence: US)
  Receive Date: 20150525
  Receipt Date: 20150525
  Transmission Date: 20150821
  Serious: Yes (Other)
  Sender: FDA-Public Use
  Company Number: US-ROCHE-1560909

PATIENT
  Age: 76 Year
  Sex: Male

DRUGS (2)
  1. TEMOZOLOMIDE. [Suspect]
     Active Substance: TEMOZOLOMIDE
     Indication: GLIOBLASTOMA
     Dosage: LAST DOSE PRIOR TO SAE: 06/FEB/2012
     Route: 065
     Dates: start: 20120105
  2. BEVACIZUMAB [Suspect]
     Active Substance: BEVACIZUMAB
     Indication: GLIOBLASTOMA
     Dosage: LAST DOSE PRIOR TO SAE: 02/FEB/2012
     Route: 065
     Dates: start: 20120105

REACTIONS (9)
  - Ecchymosis [Unknown]
  - Pulmonary embolism [Unknown]
  - Cough [Unknown]
  - Seizure [Unknown]
  - Oedema [Unknown]
  - Pain [Unknown]
  - Incontinence [Unknown]
  - Petechiae [Unknown]
  - Fall [Unknown]

NARRATIVE: CASE EVENT DATE: 20120216
